FAERS Safety Report 9557149 (Version 1)
Quarter: 2013Q3

REPORT INFORMATION
  Report Type: Spontaneous
  Country: ES (occurrence: ES)
  Receive Date: 20130926
  Receipt Date: 20130926
  Transmission Date: 20140515
  Serious: Yes (Other)
  Sender: FDA-Public Use
  Company Number: ES-B.I. PHARMACEUTICALS,INC./RIDGEFIELD-2013-BI-30084YA

PATIENT
  Age: 54 Year
  Sex: Male
  Weight: 70 kg

DRUGS (1)
  1. TAMSULOSINA [Suspect]
     Indication: URINARY TRACT DISORDER
     Dosage: 0.4 MG
     Route: 048
     Dates: start: 20130701, end: 20130702

REACTIONS (3)
  - Hypoaesthesia oral [Recovered/Resolved]
  - Hypoaesthesia oral [Recovered/Resolved]
  - Headache [Recovered/Resolved]
